FAERS Safety Report 9751189 (Version 1)
Quarter: 2013Q4

REPORT INFORMATION
  Report Type: Spontaneous
  Country: US (occurrence: US)
  Receive Date: 20131212
  Receipt Date: 20131212
  Transmission Date: 20140711
  Serious: No
  Sender: FDA-Public Use
  Company Number: US-BIOGENIDEC-2013BI096305

PATIENT
  Sex: Female

DRUGS (10)
  1. TECFIDERA [Suspect]
     Indication: PRODUCT USED FOR UNKNOWN INDICATION
     Route: 048
  2. TECFIDERA [Suspect]
     Indication: PRODUCT USED FOR UNKNOWN INDICATION
     Route: 048
  3. PROZAC [Concomitant]
  4. ZANAFLEX [Concomitant]
  5. ZYRTEC [Concomitant]
  6. NUVIGIL [Concomitant]
  7. PLAQUENIL [Concomitant]
  8. ULTRAM [Concomitant]
  9. PROPRANOLOL ER [Concomitant]
  10. VESICARE [Concomitant]

REACTIONS (2)
  - Flushing [Unknown]
  - Rash [Unknown]
